FAERS Safety Report 19087768 (Version 5)
Quarter: 2021Q3

REPORT INFORMATION
  Report Type: Report from Study
  Country: CA (occurrence: CA)
  Receive Date: 20210402
  Receipt Date: 20210811
  Transmission Date: 20211014
  Serious: Yes (Hospitalization)
  Sender: FDA-Public Use
  Company Number: CA-OTSUKA-2021_010654

PATIENT
  Age: 79 Year
  Sex: Male

DRUGS (2)
  1. CEDAZURIDINE AND DECITABINE [Suspect]
     Active Substance: CEDAZURIDINE\DECITABINE
     Indication: MYELODYSPLASTIC SYNDROME
     Dosage: 35MG/100 MG (35 MG DECITABINE AND 100 MG CEDAZURIDINE), QD ON DAYS 1?5 PER 28 DAY CYCLE
     Route: 048
     Dates: start: 20210311
  2. CEDAZURIDINE AND DECITABINE [Suspect]
     Active Substance: CEDAZURIDINE\DECITABINE
     Dosage: 35MG/100 MG (35 MG DECITABINE AND 100 MG CEDAZURIDINE), QD ON DAYS 1?3 PER 28 DAY CYCLE
     Route: 048

REACTIONS (9)
  - Pyrexia [Unknown]
  - Infection [Unknown]
  - Drug intolerance [Unknown]
  - Dysphagia [Unknown]
  - Illness [Unknown]
  - Weight decreased [Unknown]
  - Malaise [Unknown]
  - Pyrexia [Unknown]
  - Oropharyngeal pain [Unknown]

NARRATIVE: CASE EVENT DATE: 202105
